FAERS Safety Report 9568682 (Version 2)
Quarter: 2014Q1

REPORT INFORMATION
  Report Type: Spontaneous
  Country: US (occurrence: US)
  Receive Date: 20130930
  Receipt Date: 20140228
  Transmission Date: 20141002
  Serious: No
  Sender: FDA-Public Use
  Company Number: US-AMGEN-USASP2013062126

PATIENT
  Age: 49 Year
  Sex: Female
  Weight: 123.36 kg

DRUGS (2)
  1. ENBREL [Suspect]
     Indication: PSORIATIC ARTHROPATHY
     Dosage: 50 MG, TWICE WEEKLY
     Route: 065
     Dates: start: 20110403
  2. ENBREL [Suspect]
     Indication: PSORIASIS

REACTIONS (3)
  - Musculoskeletal stiffness [Not Recovered/Not Resolved]
  - Joint stiffness [Not Recovered/Not Resolved]
  - Psoriasis [Not Recovered/Not Resolved]
